FAERS Safety Report 8018243-7 (Version None)
Quarter: 2012Q1

REPORT INFORMATION
  Report Type: 
  Country: None (occurrence: None)
  Receive Date: 20120103
  Receipt Date: 20111229
  Transmission Date: 20120608
  Serious: Yes (Other)
  Sender: FDA-Public Use
  Company Number: US-BAYER-2011-035348

PATIENT
  Age: 40 Year
  Sex: Female
  Weight: 117.91 kg

DRUGS (5)
  1. YAZ [Suspect]
     Indication: ACNE
     Dosage: UNK
     Dates: start: 20070101, end: 20090101
  2. ASCORBIC ACID [Concomitant]
  3. IBUPROFEN (ADVIL) [Concomitant]
     Dosage: UNK
     Dates: start: 19820101, end: 20070101
  4. YAZ [Suspect]
     Indication: PREMENSTRUAL SYNDROME
  5. MOTRIN [Concomitant]
     Dosage: UNK
     Dates: start: 19820101, end: 20070101

REACTIONS (4)
  - DEEP VEIN THROMBOSIS [None]
  - EMOTIONAL DISTRESS [None]
  - PAIN [None]
  - INJURY [None]
